FAERS Safety Report 8362687-0 (Version None)
Quarter: 2012Q2

REPORT INFORMATION
  Report Type: 
  Country: None (occurrence: None)
  Receive Date: 20120516
  Receipt Date: 20120405
  Transmission Date: 20120825
  Serious: No
  Sender: FDA-Public Use
  Company Number: US-MYLANLABS-2012S1007089

PATIENT
  Age: 49 Year
  Sex: Female

DRUGS (6)
  1. BUPROPION HYDROCHLORIDE [Suspect]
     Indication: DISTURBANCE IN ATTENTION
     Route: 048
     Dates: start: 20120101, end: 20120331
  2. BUPROPION HYDROCHLORIDE [Suspect]
     Indication: DEPRESSION
     Route: 048
     Dates: start: 20111201
  3. PREMARIN [Concomitant]
     Indication: HORMONE REPLACEMENT THERAPY
  4. BUPROPION HYDROCHLORIDE [Suspect]
     Indication: DISTURBANCE IN ATTENTION
     Route: 048
     Dates: start: 20111201
  5. BUPROPION HYDROCHLORIDE [Suspect]
     Indication: DEPRESSION
     Route: 048
     Dates: start: 20120101, end: 20120331
  6. LORAZEPAM [Concomitant]
     Indication: ANXIETY

REACTIONS (6)
  - DRUG INEFFECTIVE [None]
  - APPETITE DISORDER [None]
  - DISTURBANCE IN ATTENTION [None]
  - DEPRESSION [None]
  - PAIN [None]
  - REACTION TO DRUG EXCIPIENTS [None]
